FAERS Safety Report 5786240-8 (Version None)
Quarter: 2008Q2

REPORT INFORMATION
  Report Type: 
  Country: None (occurrence: None)
  Receive Date: 20080624
  Receipt Date: 20070803
  Transmission Date: 20081010
  Serious: No
  Sender: FDA-Public Use
  Company Number: US-ASTRAZENECA-2007UW18707

PATIENT
  Age: 71 Year
  Sex: Female
  Weight: 54.4 kg

DRUGS (6)
  1. PULMICORT [Suspect]
     Indication: ASTHMA
     Dosage: 200 MCG / 200 DOSE UNIT
     Route: 055
  2. PRILOSEC OTC [Concomitant]
  3. PREMARIN [Concomitant]
  4. MULTI-VITAMIN [Concomitant]
  5. CALCIUM [Concomitant]
  6. ALBUTEROL [Concomitant]
     Route: 055

REACTIONS (2)
  - DRUG INEFFECTIVE [None]
  - DYSPNOEA [None]
